FAERS Safety Report 18115770 (Version 2)
Quarter: 2021Q2

REPORT INFORMATION
  Report Type: Spontaneous
  Country: US (occurrence: US)
  Receive Date: 20200805
  Receipt Date: 20210502
  Transmission Date: 20210717
  Serious: Yes (Other)
  Sender: FDA-Public Use
  Company Number: US-BRISTOL-MYERS SQUIBB COMPANY-BMS-2020-062733

PATIENT

DRUGS (1)
  1. BELATACEPT [Suspect]
     Active Substance: BELATACEPT
     Indication: RENAL TRANSPLANT
     Dosage: GRAETER THAN OR EQUAL TO FOUR DOSES
     Route: 065

REACTIONS (2)
  - Blood HIV RNA increased [Recovered/Resolved]
  - Intentional product use issue [Unknown]
